FAERS Safety Report 4716265-2 (Version None)
Quarter: 2005Q2

REPORT INFORMATION
  Report Type: 
  Country: None (occurrence: None)
  Receive Date: 20050630
  Receipt Date: 20050110
  Transmission Date: 20051028
  Serious: Yes (Hospitalization, Disabling)
  Sender: FDA-Public Use
  Company Number: US_011178295

PATIENT
  Age: 57 Year
  Sex: Female
  Weight: 74 kg

DRUGS (5)
  1. HUMALOG [Suspect]
     Indication: DIABETES MELLITUS
     Dates: start: 20011121
  2. HUMULIN U [Suspect]
     Indication: DIABETES MELLITUS
     Dosage: 12 U/IN THE MORNING
     Dates: end: 20011125
  3. HUMULIN R [Suspect]
     Indication: DIABETES MELLITUS
     Dates: end: 20011121
  4. INSULIN [Suspect]
     Indication: DIABETES MELLITUS
  5. GLUCAGON [Suspect]
     Indication: BLOOD GLUCOSE DECREASED

REACTIONS (6)
  - BLOOD GLUCOSE DECREASED [None]
  - BLOOD GLUCOSE INCREASED [None]
  - HEART RATE IRREGULAR [None]
  - HYPOAESTHESIA [None]
  - LOCALISED INFECTION [None]
  - NEUROPATHY PERIPHERAL [None]
